FAERS Safety Report 8748651 (Version 3)
Quarter: 2012Q4

REPORT INFORMATION
  Report Type: 
  Country: JP (occurrence: JP)
  Receive Date: 20120827
  Receipt Date: 20121212
  Transmission Date: 20130627
  Serious: Yes (Other)
  Sender: FDA-Public Use
  Company Number: JP-ROCHE-1106636

PATIENT
  Age: 76 Year
  Sex: Male
  Weight: 53 kg

DRUGS (8)
  1. AVASTIN [Suspect]
     Indication: COLON CANCER METASTATIC
     Dosage: Seven courses
     Route: 041
     Dates: start: 201107, end: 201110
  2. AVASTIN [Suspect]
     Indication: COLON CANCER RECURRENT
     Dosage: Five courses
     Route: 041
     Dates: start: 20120509, end: 20120802
  3. XELODA [Suspect]
     Indication: COLON CANCER RECURRENT
     Dosage: Dosage is uncertain.
     Route: 048
     Dates: start: 20120509, end: 20120802
  4. ELPLAT [Concomitant]
     Indication: COLON CANCER METASTATIC
     Dosage: Dosage is uncertain. 12 courses
     Route: 041
     Dates: start: 201104, end: 201110
  5. ELPLAT [Concomitant]
     Indication: COLON CANCER RECURRENT
     Dosage: Five courses
     Route: 041
     Dates: start: 20120509, end: 20120802
  6. 5-FU [Concomitant]
     Indication: COLON CANCER METASTATIC
     Dosage: Uncertain dosage and 12 courses
     Route: 040
     Dates: start: 201104, end: 201110
  7. 5-FU [Concomitant]
     Indication: COLON CANCER METASTATIC
     Dosage: Uncertain dosage and 12 courses
     Route: 041
     Dates: start: 201104, end: 201110
  8. LEVOFOLINATE [Concomitant]
     Indication: COLON CANCER METASTATIC
     Dosage: Uncertain dosage and 12 courses
     Route: 041
     Dates: start: 201104, end: 201110

REACTIONS (2)
  - Cerebral infarction [Recovered/Resolved with Sequelae]
  - Platelet count decreased [Recovered/Resolved]
